FAERS Safety Report 6614285-4 (Version None)
Quarter: 2010Q1

REPORT INFORMATION
  Report Type: 
  Country: None (occurrence: None)
  Receive Date: 20100303
  Receipt Date: 20100303
  Transmission Date: 20100710
  Serious: Yes (Hospitalization)
  Sender: FDA-Public Use
  Company Number: None

PATIENT
  Age: 66 Year
  Sex: Male
  Weight: 95.1193 kg

DRUGS (2)
  1. LISINOPRIL AND HYDROCHLOROTHIAZIDE [Suspect]
     Indication: HYPERTENSION
     Dosage: ONE TABLET ONCE DAILY PO
     Route: 048
     Dates: start: 20090810, end: 20091119
  2. LISINOPRIL AND HYDROCHLOROTHIAZIDE [Suspect]
     Indication: OEDEMA PERIPHERAL
     Dosage: ONE TABLET ONCE DAILY PO
     Route: 048
     Dates: start: 20090810, end: 20091119

REACTIONS (1)
  - LIP SWELLING [None]
